FAERS Safety Report 23514161 (Version 1)
Quarter: 2024Q1

REPORT INFORMATION
  Report Type: Spontaneous
  Country: US (occurrence: US)
  Receive Date: 20240212
  Receipt Date: 20240212
  Transmission Date: 20240409
  Serious: No
  Sender: FDA-Public Use
  Company Number: US-PFIZER INC-202300426651

PATIENT
  Age: 75 Year
  Sex: Female
  Weight: 125.19 kg

DRUGS (1)
  1. IBRANCE [Suspect]
     Active Substance: PALBOCICLIB
     Indication: Breast cancer metastatic
     Dosage: 100 MG, CYCLIC, 1 A DAY 3 WEEKS THEN, OFF 1 WEEK
     Dates: start: 2023

REACTIONS (3)
  - Pain in extremity [Not Recovered/Not Resolved]
  - Infection [Not Recovered/Not Resolved]
  - Intentional product misuse [Unknown]

NARRATIVE: CASE EVENT DATE: 20231123
